FAERS Safety Report 10753330 (Version 1)
Quarter: 2015Q1

REPORT INFORMATION
  Report Type: Spontaneous
  Country: KR (occurrence: KR)
  Receive Date: 20150130
  Receipt Date: 20150130
  Transmission Date: 20150721
  Serious: Yes (Other)
  Sender: FDA-Public Use
  Company Number: KR-BRISTOL-MYERS SQUIBB COMPANY-BMS-2015-005967

PATIENT
  Age: 15 Year
  Sex: Male

DRUGS (21)
  1. ABILIFY [Suspect]
     Active Substance: ARIPIPRAZOLE
     Indication: ATTENTION DEFICIT/HYPERACTIVITY DISORDER
     Route: 065
  2. ABILIFY [Suspect]
     Active Substance: ARIPIPRAZOLE
     Indication: MANIA
  3. IMIPRAMINE [Concomitant]
     Active Substance: IMIPRAMINE
     Indication: TOURETTE^S DISORDER
     Route: 065
  4. IMIPRAMINE [Concomitant]
     Active Substance: IMIPRAMINE
     Indication: ATTENTION DEFICIT/HYPERACTIVITY DISORDER
  5. METHYLPHENIDATE [Concomitant]
     Active Substance: METHYLPHENIDATE
     Indication: TOURETTE^S DISORDER
     Route: 065
  6. METHYLPHENIDATE [Concomitant]
     Active Substance: METHYLPHENIDATE
     Indication: ANXIETY DISORDER
  7. BENZTROPINE [Concomitant]
     Active Substance: BENZTROPINE
     Indication: DEPRESSION
  8. RISPERIDONE. [Concomitant]
     Active Substance: RISPERIDONE
     Indication: MENTAL DISORDER
     Route: 065
  9. SERTRALINE [Concomitant]
     Active Substance: SERTRALINE HYDROCHLORIDE
     Indication: IRRITABILITY
     Route: 065
  10. RISPERIDONE. [Concomitant]
     Active Substance: RISPERIDONE
     Indication: DEPRESSION
  11. ATOMOXETINE [Concomitant]
     Active Substance: ATOMOXETINE
     Indication: MANIA
     Route: 065
  12. VALPROATE [Concomitant]
     Active Substance: VALPROATE SODIUM
     Indication: MANIA
     Route: 065
  13. METHYLPHENIDATE [Concomitant]
     Active Substance: METHYLPHENIDATE
     Indication: MENTAL DISORDER
  14. ABILIFY [Suspect]
     Active Substance: ARIPIPRAZOLE
     Indication: BIPOLAR DISORDER
  15. METHYLPHENIDATE [Concomitant]
     Active Substance: METHYLPHENIDATE
     Indication: ATTENTION DEFICIT/HYPERACTIVITY DISORDER
  16. HALOPERIDOL. [Concomitant]
     Active Substance: HALOPERIDOL
     Indication: IRRITABILITY
     Route: 065
  17. DIAZEPAM. [Concomitant]
     Active Substance: DIAZEPAM
     Indication: DEPRESSION
     Route: 065
  18. IMIPRAMINE [Concomitant]
     Active Substance: IMIPRAMINE
     Indication: ANXIETY DISORDER
  19. ESCITALOPRAM [Concomitant]
     Active Substance: ESCITALOPRAM OXALATE
     Indication: DEPRESSION
     Route: 065
  20. ABILIFY [Suspect]
     Active Substance: ARIPIPRAZOLE
     Indication: TOURETTE^S DISORDER
  21. BENZTROPINE [Concomitant]
     Active Substance: BENZTROPINE
     Indication: IRRITABILITY
     Route: 065

REACTIONS (1)
  - Condition aggravated [Unknown]
